FAERS Safety Report 11272502 (Version 1)
Quarter: 2015Q3

REPORT INFORMATION
  Report Type: Spontaneous
  Country: US (occurrence: None)
  Receive Date: 20150714
  Receipt Date: 20150714
  Transmission Date: 20151125
  Serious: No
  Sender: FDA-Public Use
  Company Number: None

PATIENT
  Age: 65 Year
  Sex: Female
  Weight: 48.99 kg

DRUGS (1)
  1. VITAMIN D [Suspect]
     Active Substance: CHOLECALCIFEROL
     Indication: VITAMIN D DECREASED
     Dosage: 50,000 IU?1.25 MG ?1 CAP?ONCE A WEEK ?MOUTH (PO)
     Route: 048
     Dates: start: 20150618

REACTIONS (3)
  - Tinnitus [None]
  - Nocturia [None]
  - Sleep disorder [None]

NARRATIVE: CASE EVENT DATE: 20150618
